FAERS Safety Report 11697522 (Version 2)
Quarter: 2016Q1

REPORT INFORMATION
  Report Type: Spontaneous
  Country: US (occurrence: US)
  Receive Date: 20151104
  Receipt Date: 20160105
  Transmission Date: 20160525
  Serious: No
  Sender: FDA-Public Use
  Company Number: US-PFIZER INC-2015359801

PATIENT
  Age: 35 Year
  Sex: Female
  Weight: 61 kg

DRUGS (13)
  1. LYRICA [Suspect]
     Active Substance: PREGABALIN
     Indication: FIBROMYALGIA
     Dosage: 75 MG, 1X/DAY
     Route: 048
     Dates: start: 201304
  2. LYRICA [Suspect]
     Active Substance: PREGABALIN
     Indication: ARTHRITIS
     Dosage: 75 MG, 2X/DAY
     Route: 048
  3. LYRICA [Suspect]
     Active Substance: PREGABALIN
     Dosage: 150 MG, 2X/DAY
     Route: 048
  4. XANAX [Concomitant]
     Active Substance: ALPRAZOLAM
     Dosage: 0.5 MG, AS NEEDED, 1MG TABLET, HALF
     Route: 048
  5. DRAMAMINE [Concomitant]
     Active Substance: DIMENHYDRINATE
     Indication: VERTIGO
     Dosage: 25 MG, AS NEEDED
     Route: 048
  6. NORCO [Concomitant]
     Active Substance: ACETAMINOPHEN\HYDROCODONE BITARTRATE
     Indication: PAIN
     Dosage: 1 DF, 4X/DAY, [HYDROCODONE BITARTRATE 10 MG]/[ PARACETAMOL 325 MG], EVERY 6 HOURS
     Route: 048
  7. VALACYCLOVIR [Concomitant]
     Active Substance: VALACYCLOVIR HYDROCHLORIDE
     Indication: LYMPHADENOPATHY
  8. TRAMADOL. [Concomitant]
     Active Substance: TRAMADOL
     Indication: PAIN
     Dosage: 2 DF, UNK, EVERY 4-6 HOURS
     Route: 048
  9. CLINDAMYCIN [Concomitant]
     Active Substance: CLINDAMYCIN\CLINDAMYCIN PHOSPHATE
     Indication: HERPES ZOSTER
     Dosage: 300 MG, 4X/DAY, EVERY 6 HOURS
     Route: 048
  10. VALACYCLOVIR [Concomitant]
     Active Substance: VALACYCLOVIR HYDROCHLORIDE
     Indication: HERPES ZOSTER
     Dosage: 1 G, 3X/DAY
  11. BUSPAR [Concomitant]
     Active Substance: BUSPIRONE HYDROCHLORIDE
     Indication: ANXIETY
     Dosage: 15 MG, 2X/DAY
     Route: 048
  12. XANAX [Concomitant]
     Active Substance: ALPRAZOLAM
     Indication: ANXIETY
     Dosage: 1 MG, AS NEEDED
     Route: 048
  13. CYCLOBENZAPRINE [Concomitant]
     Active Substance: CYCLOBENZAPRINE
     Indication: MUSCLE SPASMS
     Dosage: 5 MG, 3X/DAY
     Route: 048

REACTIONS (6)
  - Sleep disorder [Unknown]
  - Stress [Unknown]
  - Sleep apnoea syndrome [Not Recovered/Not Resolved]
  - Product use issue [Unknown]
  - Asthenia [Unknown]
  - Middle insomnia [Unknown]

NARRATIVE: CASE EVENT DATE: 201505
